FAERS Safety Report 9430143 (Version 1)
Quarter: 2013Q3

REPORT INFORMATION
  Report Type: Spontaneous
  Country: US (occurrence: US)
  Receive Date: 20130730
  Receipt Date: 20130730
  Transmission Date: 20140515
  Serious: No
  Sender: FDA-Public Use
  Company Number: US-PFIZER INC-2013218611

PATIENT
  Sex: Male

DRUGS (1)
  1. ADVIL PM [Suspect]
     Indication: SLEEP DISORDER
     Dosage: 3-4 PILLS EVERY NIGHT

REACTIONS (3)
  - Intentional overdose [Unknown]
  - Off label use [Unknown]
  - Drug tolerance increased [Unknown]
